FAERS Safety Report 5859186-4 (Version None)
Quarter: 2008Q3

REPORT INFORMATION
  Report Type: 
  Country: None (occurrence: None)
  Receive Date: 20080826
  Receipt Date: 20080826
  Transmission Date: 20090109
  Serious: Yes (Hospitalization, Disabling, Other)
  Sender: FDA-Public Use
  Company Number: None

PATIENT
  Age: 56 Year
  Sex: Female
  Weight: 70.3075 kg

DRUGS (5)
  1. ZETIA [Suspect]
     Indication: BLOOD CHOLESTEROL INCREASED
     Dosage: 10MG DAILY 66582-0414-74
     Dates: start: 20070201, end: 20070901
  2. TOPAMAX [Concomitant]
  3. ACLOVIR [Concomitant]
  4. LIDODERM [Concomitant]
  5. RELPAX [Concomitant]

REACTIONS (3)
  - MUSCLE INJURY [None]
  - MYALGIA [None]
  - PAIN IN EXTREMITY [None]
